FAERS Safety Report 7804358-2 (Version None)
Quarter: 2011Q4

REPORT INFORMATION
  Report Type: 
  Country: None (occurrence: None)
  Receive Date: 20111010
  Receipt Date: 20110928
  Transmission Date: 20120403
  Serious: Yes (Hospitalization)
  Sender: FDA-Public Use
  Company Number: US-BAYER-2011-025457

PATIENT
  Sex: Female
  Weight: 44 kg

DRUGS (1)
  1. YAZ [Suspect]
     Indication: OVARIAN CYST
     Dosage: UNK
     Dates: start: 20070101, end: 20090101

REACTIONS (3)
  - CHOLECYSTECTOMY [None]
  - PAIN [None]
  - INJURY [None]
